FAERS Safety Report 24847699 (Version 3)
Quarter: 2025Q1

REPORT INFORMATION
  Report Type: Spontaneous
  Country: US (occurrence: US)
  Receive Date: 20250116
  Receipt Date: 20250205
  Transmission Date: 20250409
  Serious: Yes (Hospitalization, Other)
  Sender: MERCK
  Company Number: US-009507513-2501USA003285

PATIENT
  Age: 63 Year
  Sex: Male
  Weight: 95.44 kg

DRUGS (15)
  1. INVANZ [Suspect]
     Active Substance: ERTAPENEM SODIUM
     Indication: Osteomyelitis
     Dosage: 1 GRAM, QD
     Route: 042
     Dates: start: 20241218, end: 20250105
  2. HUMALOG [Concomitant]
     Active Substance: INSULIN LISPRO
     Indication: Diabetes mellitus
     Dosage: 1 SYRINGE DAILY, PRN; STRENGTH: 100 DOSAGE FORM
     Route: 058
     Dates: start: 20160701, end: 20250116
  3. LANTUS [Concomitant]
     Active Substance: INSULIN GLARGINE
     Indication: Diabetes mellitus
     Route: 058
     Dates: start: 20160808, end: 20250116
  4. LIPITOR [Concomitant]
     Active Substance: ATORVASTATIN CALCIUM
     Indication: Hyperlipidaemia
     Route: 048
     Dates: start: 20171101, end: 20250116
  5. PLAVIX [Concomitant]
     Active Substance: CLOPIDOGREL BISULFATE
     Indication: Antiplatelet therapy
     Route: 048
     Dates: start: 20190729
  6. ALBUTEROL [Concomitant]
     Active Substance: ALBUTEROL
     Indication: Asthma
     Dosage: 2 PUFF, PRN; STRENGTH: 90 DOSAGE FORM; FORMULATION: INHALANT
     Route: 048
     Dates: start: 20190918
  7. NITROGLYCERIN [Concomitant]
     Active Substance: NITROGLYCERIN
     Indication: Chest pain
     Dosage: 0.4MILLIGRAM DAILY, PRN
     Route: 060
     Dates: start: 20200112, end: 20250116
  8. ASPIRIN [Concomitant]
     Active Substance: ASPIRIN
     Indication: Ventricular tachycardia
     Route: 048
     Dates: start: 20211011
  9. FARXIGA [Concomitant]
     Active Substance: DAPAGLIFLOZIN PROPANEDIOL
     Indication: Cardiac failure
     Route: 048
     Dates: start: 20211117, end: 20250116
  10. TOPROL XL [Concomitant]
     Active Substance: METOPROLOL SUCCINATE
     Indication: Cardiac failure
     Dosage: 12.5 MILLIGRAM, QD
     Route: 048
     Dates: start: 20220427, end: 20250116
  11. GENTAMICIN [Concomitant]
     Active Substance: GENTAMICIN
     Indication: Skin ulcer
     Route: 061
     Dates: start: 20221002
  12. KETOCONAZOLE [Concomitant]
     Active Substance: KETOCONAZOLE
     Indication: Osteomyelitis
     Dosage: 2 PERCENT, QW
     Route: 061
     Dates: start: 20241206
  13. FUROSEMIDE [Concomitant]
     Active Substance: FUROSEMIDE
     Indication: Cardiac failure congestive
     Dosage: 40 MILLIGRAM, QD
     Route: 048
     Dates: start: 20241218, end: 20250105
  14. ALLOPURINOL [Concomitant]
     Active Substance: ALLOPURINOL
     Indication: Gout
     Dosage: 100 MILLIGRAM, QD
     Route: 048
     Dates: start: 20241218
  15. CUBICIN [Concomitant]
     Active Substance: DAPTOMYCIN
     Indication: Osteomyelitis
     Dosage: 475 MILLIGRAM, QD
     Route: 042
     Dates: start: 20241218

REACTIONS (1)
  - Encephalopathy [Recovered/Resolved]

NARRATIVE: CASE EVENT DATE: 20250105
